FAERS Safety Report 15330757 (Version 1)
Quarter: 2018Q3

REPORT INFORMATION
  Report Type: Spontaneous
  Country: US (occurrence: US)
  Receive Date: 20180824
  Receipt Date: 20180824
  Transmission Date: 20181010
  Serious: No
  Sender: FDA-Public Use
  Company Number: None

PATIENT
  Age: 9 Year
  Sex: Male

DRUGS (2)
  1. ALCORTIN A [Suspect]
     Active Substance: ALOE VERA LEAF\HYDROCORTISONE ACETATE\IODOQUINOL
     Indication: BLISTER
     Route: 061
     Dates: start: 20180730, end: 20180824
  2. ALCORTIN A?07/30/2018? [Concomitant]

REACTIONS (1)
  - Drug ineffective [None]

NARRATIVE: CASE EVENT DATE: 20180730
